FAERS Safety Report 6414885-0 (Version None)
Quarter: 2009Q4

REPORT INFORMATION
  Report Type: 
  Country: None (occurrence: None)
  Receive Date: 20091026
  Receipt Date: 20090611
  Transmission Date: 20100525
  Serious: No
  Sender: FDA-Public Use
  Company Number: US-ABBOTT-09P-163-0579425-00

PATIENT

DRUGS (1)
  1. LUPRON DEPOT [Suspect]
     Indication: ENDOMETRIOSIS

REACTIONS (2)
  - DRUG DOSE OMISSION [None]
  - INCORRECT STORAGE OF DRUG [None]
